FAERS Safety Report 7398007-8 (Version None)
Quarter: 2011Q2

REPORT INFORMATION
  Report Type: 
  Country: None (occurrence: None)
  Receive Date: 20110406
  Receipt Date: 20110404
  Transmission Date: 20111010
  Serious: Yes (Death, Other)
  Sender: FDA-Public Use
  Company Number: US-AMGEN-USASP2011011882

PATIENT
  Age: 86 Year
  Sex: Male
  Weight: 78.458 kg

DRUGS (9)
  1. ATORVASTATIN CALCIUM [Concomitant]
  2. CATAPRES                           /00171101/ [Concomitant]
  3. CARVEDILOL [Concomitant]
  4. RENVELA [Concomitant]
  5. CORTICOSTEROIDS [Concomitant]
  6. VITAMIN A [Concomitant]
  7. NPLATE [Suspect]
     Indication: IDIOPATHIC THROMBOCYTOPENIC PURPURA
     Dosage: 1 A?G/KG, QWK
     Dates: start: 20101111, end: 20110117
  8. AMLODIPINE [Concomitant]
  9. FUROSEMIDE [Concomitant]

REACTIONS (3)
  - DEATH [None]
  - ADVERSE EVENT [None]
  - THROMBOPHLEBITIS SUPERFICIAL [None]
